FAERS Safety Report 17764435 (Version 2)
Quarter: 2020Q3

REPORT INFORMATION
  Report Type: Report from Study
  Country: None (occurrence: US)
  Receive Date: 20200511
  Receipt Date: 20200921
  Transmission Date: 20201102
  Serious: Yes (Other)
  Sender: FDA-Public Use
  Company Number: US-ABBVIE-19K-163-3136485-00

PATIENT
  Sex: Male

DRUGS (6)
  1. IMBRUVICA [Suspect]
     Active Substance: IBRUTINIB
     Route: 048
     Dates: start: 20181128, end: 20190503
  2. SERTRALINE [Concomitant]
     Active Substance: SERTRALINE HYDROCHLORIDE
     Indication: PRODUCT USED FOR UNKNOWN INDICATION
  3. IMBRUVICA [Suspect]
     Active Substance: IBRUTINIB
     Route: 048
     Dates: start: 20181128
  4. IMBRUVICA [Suspect]
     Active Substance: IBRUTINIB
     Indication: CHRONIC LYMPHOCYTIC LEUKAEMIA
     Route: 048
     Dates: start: 20181128, end: 20190501
  5. EAR DROPS [Concomitant]
     Indication: PRODUCT USED FOR UNKNOWN INDICATION
  6. NORCO [Concomitant]
     Active Substance: ACETAMINOPHEN\HYDROCODONE BITARTRATE
     Indication: PRODUCT USED FOR UNKNOWN INDICATION

REACTIONS (15)
  - Abdominal discomfort [Not Recovered/Not Resolved]
  - Epistaxis [Unknown]
  - Concussion [Unknown]
  - Confusional state [Unknown]
  - Head discomfort [Unknown]
  - Dizziness [Unknown]
  - Pain [Recovering/Resolving]
  - Chest pain [Unknown]
  - Amnesia [Unknown]
  - Product dose omission issue [Unknown]
  - Balance disorder [Unknown]
  - Headache [Unknown]
  - Movement disorder [Unknown]
  - Wrong technique in product usage process [Unknown]
  - Vertigo [Unknown]

NARRATIVE: CASE EVENT DATE: 2018
